FAERS Safety Report 7261774-8 (Version None)
Quarter: 2011Q1

REPORT INFORMATION
  Report Type: 
  Country: None (occurrence: None)
  Receive Date: 20110130
  Receipt Date: 20101104
  Transmission Date: 20110831
  Serious: No
  Sender: FDA-Public Use
  Company Number: US-ABBOTT-10P-163-0683225-00

PATIENT
  Sex: Female
  Weight: 59.928 kg

DRUGS (7)
  1. ASCORBIC ACID [Concomitant]
     Indication: VITAMIN SUPPLEMENTATION
     Dosage: UNKNOWN STRENGTH
     Route: 048
  2. VITAMIN D [Concomitant]
     Indication: VITAMIN SUPPLEMENTATION
     Dosage: UNKNOWN STRENGTH
     Route: 048
  3. LISINOPRIL [Concomitant]
     Indication: HYPERTENSION
     Route: 048
  4. VITAMIN E [Concomitant]
     Indication: VITAMIN SUPPLEMENTATION
     Dosage: UNKNOWN STRENGTH
     Route: 048
  5. BEE POLLEN [Concomitant]
     Indication: MEDICAL DIET
     Route: 048
     Dates: start: 20101028
  6. HUMIRA [Suspect]
     Indication: PSORIASIS
     Route: 058
     Dates: start: 20101021
  7. ACETAMINOPHEN [Concomitant]
     Indication: DISCOMFORT
     Route: 048

REACTIONS (4)
  - PRURITUS [None]
  - PAIN IN EXTREMITY [None]
  - OEDEMA PERIPHERAL [None]
  - ALOPECIA [None]
